FAERS Safety Report 20759456 (Version 1)
Quarter: 2022Q2

REPORT INFORMATION
  Report Type: Spontaneous
  Country: US (occurrence: US)
  Receive Date: 20220427
  Receipt Date: 20220427
  Transmission Date: 20220721
  Serious: No
  Sender: FDA-Public Use
  Company Number: US-BioHaven Pharmaceuticals-2022BHV000561

PATIENT
  Age: 48 Year
  Sex: Female
  Weight: 64.922 kg

DRUGS (3)
  1. NURTEC ODT [Suspect]
     Active Substance: RIMEGEPANT SULFATE
     Indication: Migraine
     Dosage: 1 TABLET
     Route: 060
     Dates: start: 2021
  2. NURTEC ODT [Suspect]
     Active Substance: RIMEGEPANT SULFATE
     Indication: Migraine prophylaxis
     Route: 060
     Dates: start: 20220218
  3. MEMANTINE [Concomitant]
     Active Substance: MEMANTINE
     Indication: Off label use
     Dosage: 10 MG TWICE A DAY, OFF LABEL PREVENTATIVE
     Route: 065

REACTIONS (7)
  - Mental impairment [Unknown]
  - Therapeutic product effect variable [Unknown]
  - Drug ineffective [Recovered/Resolved]
  - COVID-19 [Recovered/Resolved]
  - Post-acute COVID-19 syndrome [Recovering/Resolving]
  - Blood potassium abnormal [Unknown]
  - Feeling abnormal [Unknown]

NARRATIVE: CASE EVENT DATE: 20220131
